FAERS Safety Report 7522365-4 (Version None)
Quarter: 2011Q2

REPORT INFORMATION
  Report Type: 
  Country: None (occurrence: None)
  Receive Date: 20110518
  Receipt Date: 20110503
  Transmission Date: 20111010
  Serious: Yes (Hospitalization)
  Sender: FDA-Public Use
  Company Number: 3001236616-2011-0006

PATIENT
  Sex: Male

DRUGS (1)
  1. DEMINERALIZED CORTICAL POWDER, 0.25CC [Suspect]
     Indication: SOFT TISSUE DISORDER
     Dosage: SINGLE USE, 064
     Dates: start: 20110418

REACTIONS (5)
  - POST PROCEDURAL COMPLICATION [None]
  - PROCEDURAL PAIN [None]
  - HYPERAESTHESIA [None]
  - POSTOPERATIVE FEVER [None]
  - CHILLS [None]
